FAERS Safety Report 24262188 (Version 1)
Quarter: 2024Q3

REPORT INFORMATION
  Report Type: Report from Study
  Country: CA (occurrence: CA)
  Receive Date: 20240829
  Receipt Date: 20240829
  Transmission Date: 20241017
  Serious: Yes (Hospitalization)
  Sender: ABBVIE
  Company Number: CA-ABBVIE-5897677

PATIENT
  Age: 44 Year
  Sex: Female

DRUGS (1)
  1. SKYRIZI [Suspect]
     Active Substance: RISANKIZUMAB-RZAA
     Indication: Crohn^s disease
     Route: 058
     Dates: start: 20240812, end: 20240826

REACTIONS (4)
  - Delirium [Unknown]
  - Pyrexia [Not Recovered/Not Resolved]
  - General symptom [Unknown]
  - Nightmare [Unknown]

NARRATIVE: CASE EVENT DATE: 20240801
